FAERS Safety Report 5534986-9 (Version None)
Quarter: 2007Q4

REPORT INFORMATION
  Report Type: 
  Country: None (occurrence: None)
  Receive Date: 20071203
  Receipt Date: 20071121
  Transmission Date: 20080405
  Serious: Yes (Other)
  Sender: FDA-Public Use
  Company Number: 07-508

PATIENT
  Sex: Female

DRUGS (2)
  1. VITAMIN D                         ERGOCALCIFEROL CAPSULES [Suspect]
     Indication: OSTEOPOROSIS
     Dosage: 50,000UNITS WEEKLY, ORAL
     Route: 048
  2. CORTICOSTEROIDS [Concomitant]

REACTIONS (1)
  - DEAFNESS UNILATERAL [None]
